FAERS Safety Report 7472570-0 (Version None)
Quarter: 2011Q2

REPORT INFORMATION
  Report Type: 
  Country: None (occurrence: None)
  Receive Date: 20110502
  Receipt Date: 20110331
  Transmission Date: 20111010
  Serious: Yes (Death)
  Sender: FDA-Public Use
  Company Number: DSA_45203_2011

PATIENT
  Sex: Male
  Weight: 79.3795 kg

DRUGS (4)
  1. AMBIEN [Concomitant]
  2. LEXAPRO [Concomitant]
  3. XENAZINE [Suspect]
     Indication: HUNTINGTON'S DISEASE
     Dosage: 25 MG, QID, ORAL
     Route: 048
     Dates: start: 20101115, end: 20110213
  4. KLONOPIN [Concomitant]

REACTIONS (16)
  - ACTIVITIES OF DAILY LIVING IMPAIRED [None]
  - DYSPHONIA [None]
  - AGITATION [None]
  - DYSKINESIA [None]
  - GAIT DISTURBANCE [None]
  - FRUSTRATION [None]
  - GRIMACING [None]
  - TONGUE DISORDER [None]
  - INCORRECT DOSE ADMINISTERED [None]
  - INSOMNIA [None]
  - DYSTONIA [None]
  - FATIGUE [None]
  - MUSCULOSKELETAL STIFFNESS [None]
  - DYSPHEMIA [None]
  - ASTHENIA [None]
  - MYOCARDIAL INFARCTION [None]
